FAERS Safety Report 22129642 (Version 1)
Quarter: 2023Q1

REPORT INFORMATION
  Report Type: Report from Study
  Country: EG (occurrence: EG)
  Receive Date: 20230323
  Receipt Date: 20230323
  Transmission Date: 20230418
  Serious: Yes (Other)
  Sender: FDA-Public Use
  Company Number: EG-002147023-NVSC2023EG063149

PATIENT
  Sex: Female

DRUGS (1)
  1. KISQALI [Suspect]
     Active Substance: RIBOCICLIB
     Indication: Breast cancer metastatic
     Dosage: UNK
     Route: 048

REACTIONS (6)
  - Pulmonary oedema [Unknown]
  - Cardiomyopathy [Unknown]
  - Oedema [Unknown]
  - Blood pressure increased [Unknown]
  - Fatigue [Unknown]
  - Vein disorder [Unknown]
